FAERS Safety Report 7202288-0 (Version None)
Quarter: 2010Q4

REPORT INFORMATION
  Report Type: 
  Country: None (occurrence: None)
  Receive Date: 20101229
  Receipt Date: 20101228
  Transmission Date: 20110411
  Serious: Yes (Life-Threatening)
  Sender: FDA-Public Use
  Company Number: DE-TEVA-260753GER

PATIENT
  Sex: Female
  Weight: 78.5 kg

DRUGS (2)
  1. PACLITAXEL GRY 300MG [Suspect]
     Indication: OVARIAN CANCER
     Route: 042
     Dates: start: 20101207, end: 20101207
  2. CARBOPLATIN [Concomitant]
     Indication: OVARIAN CANCER
     Route: 042
     Dates: start: 20101207, end: 20101207

REACTIONS (3)
  - APNOEA [None]
  - LIVIDITY [None]
  - UNRESPONSIVE TO STIMULI [None]
